FAERS Safety Report 8326522-9 (Version None)
Quarter: 2012Q2

REPORT INFORMATION
  Report Type: 
  Country: None (occurrence: None)
  Receive Date: 20120501
  Receipt Date: 20120419
  Transmission Date: 20120825
  Serious: Yes (Other)
  Sender: FDA-Public Use
  Company Number: FR-BRISTOL-MYERS SQUIBB COMPANY-16539140

PATIENT
  Age: 23 Year
  Sex: Female

DRUGS (1)
  1. DASATINIB [Suspect]
     Indication: CHRONIC MYELOID LEUKAEMIA

REACTIONS (5)
  - ABORTION INDUCED [None]
  - HYDROPS FOETALIS [None]
  - LEUKOPENIA [None]
  - PREGNANCY [None]
  - THROMBOCYTOPENIA [None]
